FAERS Safety Report 23940609 (Version 1)
Quarter: 2024Q2

REPORT INFORMATION
  Report Type: Spontaneous
  Country: KR (occurrence: KR)
  Receive Date: 20240605
  Receipt Date: 20240605
  Transmission Date: 20240716
  Serious: Yes (Other)
  Sender: FDA-Public Use
  Company Number: KR-AMGEN-KORSP2024108064

PATIENT
  Age: 64 Year
  Sex: Female

DRUGS (4)
  1. PROLIA [Suspect]
     Active Substance: DENOSUMAB
     Indication: Metastases to spine
     Dosage: UNK
     Route: 065
     Dates: start: 202210
  2. PROLIA [Suspect]
     Active Substance: DENOSUMAB
     Indication: Breast cancer
  3. FEMARA [Concomitant]
     Active Substance: LETROZOLE
     Indication: Hormone therapy
  4. VERZENIO [Concomitant]
     Active Substance: ABEMACICLIB
     Indication: Prophylaxis

REACTIONS (1)
  - Osteomyelitis [Unknown]
